FAERS Safety Report 5225127-6 (Version None)
Quarter: 2007Q1

REPORT INFORMATION
  Report Type: 
  Country: None (occurrence: None)
  Receive Date: 20070131
  Receipt Date: 20070122
  Transmission Date: 20070707
  Serious: Yes (Other)
  Sender: FDA-Public Use
  Company Number: AU-JNJFOC-20061106440

PATIENT
  Sex: Female
  Weight: 80 kg

DRUGS (3)
  1. REMICADE [Suspect]
     Indication: CROHN'S DISEASE
     Dosage: SINGLE DOSE
     Route: 042
  2. AZATHIOPRINE [Concomitant]
  3. MESALAZINE [Concomitant]

REACTIONS (1)
  - SEPTIC SHOCK [None]
